FAERS Safety Report 13862135 (Version 1)
Quarter: 2017Q3

REPORT INFORMATION
  Report Type: Spontaneous
  Country: CN (occurrence: CN)
  Receive Date: 20170812
  Receipt Date: 20170812
  Transmission Date: 20171127
  Serious: Yes (Other)
  Sender: FDA-Public Use
  Company Number: CN-B.I. PHARMACEUTICALS,INC./RIDGEFIELD-2017-BI-044061

PATIENT
  Age: 67 Year
  Sex: Male
  Weight: 50 kg

DRUGS (3)
  1. AMANTADINE HYDROCHLORIDE TABLETS [Concomitant]
     Indication: PARKINSON^S DISEASE
     Route: 048
     Dates: start: 20150701, end: 20170425
  2. LEVODOPA AND BENSERAZIDE HYDROCHLORIDE TABLETS [Concomitant]
     Indication: PARKINSON^S DISEASE
     Route: 048
     Dates: start: 20150701, end: 20170425
  3. SIFROL [Suspect]
     Active Substance: PRAMIPEXOLE
     Indication: PARKINSON^S DISEASE
     Route: 048
     Dates: start: 20170418, end: 20170421

REACTIONS (2)
  - Hypoaesthesia oral [Recovering/Resolving]
  - Dysphagia [Recovering/Resolving]

NARRATIVE: CASE EVENT DATE: 20170419
